FAERS Safety Report 5280658-8 (Version None)
Quarter: 2007Q1

REPORT INFORMATION
  Report Type: 
  Country: None (occurrence: None)
  Receive Date: 20070322
  Receipt Date: 20070306
  Transmission Date: 20070707
  Serious: Yes (Hospitalization)
  Sender: FDA-Public Use
  Company Number: 2007JP000775

PATIENT
  Age: 9 Year
  Sex: Male

DRUGS (1)
  1. PROGRAF [Suspect]
     Indication: BONE MARROW TRANSPLANT

REACTIONS (13)
  - ADENOVIRAL HAEMORRHAGIC CYSTITIS [None]
  - ASCITES [None]
  - CHRONIC GRAFT VERSUS HOST DISEASE [None]
  - DIARRHOEA [None]
  - ERYTHEMA [None]
  - HEPATIC FUNCTION ABNORMAL [None]
  - HERPES ZOSTER [None]
  - MENINGITIS ASEPTIC [None]
  - OEDEMA [None]
  - PERICARDIAL EFFUSION [None]
  - PLEURAL EFFUSION [None]
  - PLEURISY [None]
  - PNEUMOTHORAX [None]
